FAERS Safety Report 12164377 (Version 1)
Quarter: 2016Q1

REPORT INFORMATION
  Report Type: Spontaneous
  Country: FR (occurrence: FR)
  Receive Date: 20160309
  Receipt Date: 20160309
  Transmission Date: 20160526
  Serious: Yes (Hospitalization)
  Sender: FDA-Public Use
  Company Number: FR-ELI_LILLY_AND_COMPANY-FR201603001216

PATIENT
  Age: 63 Year
  Sex: Male

DRUGS (10)
  1. TEMERIT [Concomitant]
     Active Substance: NEBIVOLOL
     Dosage: 1 DF, QD
     Route: 065
  2. B12-VITAMIIN [Concomitant]
     Indication: LUNG ADENOCARCINOMA
     Dosage: 2 DF, QD
     Route: 065
  3. ALIMTA [Suspect]
     Active Substance: PEMETREXED DISODIUM
     Indication: LUNG ADENOCARCINOMA
     Dosage: 500 MG/M2, CYCLICAL
     Route: 042
     Dates: end: 20160104
  4. MAGNE B6                           /00869101/ [Concomitant]
     Indication: LUNG ADENOCARCINOMA
     Dosage: 4 DF, EACH MORNING
     Route: 065
  5. ARANESP [Suspect]
     Active Substance: DARBEPOETIN ALFA
     Indication: LUNG ADENOCARCINOMA
     Dosage: 30 UG, OTHER EVERY 3 DAYS
     Route: 065
  6. DAFALGAN [Concomitant]
     Active Substance: ACETAMINOPHEN
     Dosage: UNK, UNKNOWN
     Route: 065
  7. SPECIAFOLDINE [Concomitant]
     Active Substance: FOLIC ACID
     Indication: LUNG ADENOCARCINOMA
     Dosage: 0.4 MG, QD
     Route: 065
  8. MAGNE B6                           /00869101/ [Concomitant]
     Dosage: 4 DF, EACH EVENING
     Route: 065
  9. EUPANTOL [Concomitant]
     Active Substance: PANTOPRAZOLE SODIUM
     Dosage: 1 DF, QD
     Route: 065
  10. AMLODIPINE [Concomitant]
     Active Substance: AMLODIPINE BESYLATE
     Dosage: 1 DF, QD
     Route: 065

REACTIONS (4)
  - Fatigue [Recovered/Resolved]
  - Respiratory disorder [Recovered/Resolved]
  - Palpitations [Recovered/Resolved]
  - Retinal artery occlusion [Unknown]

NARRATIVE: CASE EVENT DATE: 20160104
